FAERS Safety Report 4940488-0 (Version None)
Quarter: 2006Q1

REPORT INFORMATION
  Report Type: 
  Country: None (occurrence: None)
  Receive Date: 20060131
  Receipt Date: 20051004
  Transmission Date: 20060701
  Serious: No
  Sender: FDA-Public Use
  Company Number: 200517086US

PATIENT
  Age: 41 Year
  Sex: Female

DRUGS (1)
  1. KETEK [Suspect]
     Indication: BRONCHITIS
     Dosage: 400 MG BID PO
     Route: 048
     Dates: start: 20050919, end: 20050922

REACTIONS (5)
  - DIZZINESS [None]
  - HEADACHE [None]
  - MUSCULAR WEAKNESS [None]
  - NAUSEA [None]
  - VISION BLURRED [None]
